FAERS Safety Report 6554371-0 (Version None)
Quarter: 2010Q1

REPORT INFORMATION
  Report Type: 
  Country: None (occurrence: None)
  Receive Date: 20100127
  Receipt Date: 20100122
  Transmission Date: 20100710
  Serious: Yes (Hospitalization)
  Sender: FDA-Public Use
  Company Number: B0628567A

PATIENT
  Sex: Male

DRUGS (5)
  1. AUGMENTIN [Suspect]
     Route: 048
     Dates: start: 20081008, end: 20081008
  2. SPIRIVA [Concomitant]
     Indication: CHRONIC OBSTRUCTIVE PULMONARY DISEASE
     Dosage: 18MCG PER DAY
     Route: 048
  3. SERETIDE [Concomitant]
     Indication: CHRONIC OBSTRUCTIVE PULMONARY DISEASE
     Dosage: 1UNIT TWICE PER DAY
     Route: 048
  4. LAMOTRIGINE [Concomitant]
     Indication: EPILEPSY
     Route: 048
  5. VICTAN [Concomitant]
     Indication: ANXIETY
     Dosage: 2MG UNKNOWN
     Route: 048

REACTIONS (7)
  - ABDOMINAL PAIN [None]
  - ANAPHYLACTIC SHOCK [None]
  - GENERALISED ERYTHEMA [None]
  - HYPERHIDROSIS [None]
  - HYPOTENSION [None]
  - MALAISE [None]
  - TACHYCARDIA [None]
